FAERS Safety Report 23750860 (Version 1)
Quarter: 2024Q2

REPORT INFORMATION
  Report Type: Spontaneous
  Country: AU (occurrence: AU)
  Receive Date: 20240417
  Receipt Date: 20240417
  Transmission Date: 20240716
  Serious: Yes (Hospitalization, Other)
  Sender: FDA-Public Use
  Company Number: AU-PADAGIS-2024PAD00613

PATIENT

DRUGS (17)
  1. BUDESONIDE [Interacting]
     Active Substance: BUDESONIDE
     Indication: Graft versus host disease in gastrointestinal tract
     Dosage: 3 MG, TID
     Route: 065
  2. BUDESONIDE [Interacting]
     Active Substance: BUDESONIDE
     Indication: Diarrhoea
     Dosage: UNK TAPERED
     Route: 065
  3. CYCLOSPORINE [Suspect]
     Active Substance: CYCLOSPORINE
     Indication: Graft versus host disease in gastrointestinal tract
     Dosage: 200 MG, BID
     Route: 065
  4. CYCLOSPORINE [Suspect]
     Active Substance: CYCLOSPORINE
     Indication: Diarrhoea
     Dosage: UNK (TAPERED)
     Route: 065
     Dates: end: 202303
  5. METHYLPREDNISOLONE [Suspect]
     Active Substance: METHYLPREDNISOLONE
     Indication: Graft versus host disease in gastrointestinal tract
     Dosage: 2 MG/KG
     Route: 042
  6. METHYLPREDNISOLONE [Suspect]
     Active Substance: METHYLPREDNISOLONE
     Indication: Diarrhoea
     Dosage: 1-1.25 MG/KG
     Route: 042
  7. METHYLPREDNISOLONE [Suspect]
     Active Substance: METHYLPREDNISOLONE
     Dosage: UNK TAPERED
     Route: 042
  8. POSACONAZOLE [Interacting]
     Active Substance: POSACONAZOLE
     Indication: Graft versus host disease in gastrointestinal tract
     Dosage: 300 MG
     Route: 048
  9. POSACONAZOLE [Interacting]
     Active Substance: POSACONAZOLE
     Indication: Diarrhoea
  10. PREDNISOLONE [Suspect]
     Active Substance: PREDNISOLONE
     Indication: Graft versus host disease in gastrointestinal tract
     Dosage: 100 MG
     Route: 048
     Dates: start: 202302
  11. PREDNISOLONE [Suspect]
     Active Substance: PREDNISOLONE
     Indication: Diarrhoea
     Dosage: 75 MG
     Route: 048
     Dates: start: 202302
  12. PREDNISOLONE [Suspect]
     Active Substance: PREDNISOLONE
     Dosage: 50 MG
     Route: 048
     Dates: start: 202302
  13. PREDNISOLONE [Suspect]
     Active Substance: PREDNISOLONE
     Dosage: 25 MG
     Route: 048
  14. PREDNISOLONE [Suspect]
     Active Substance: PREDNISOLONE
     Dosage: 12.5 MG
     Route: 048
  15. PREDNISOLONE [Suspect]
     Active Substance: PREDNISOLONE
     Dosage: 10 MG
     Route: 048
  16. PREDNISOLONE [Suspect]
     Active Substance: PREDNISOLONE
     Dosage: 5 MG
     Route: 048
     Dates: end: 202303
  17. VALGANCICLOVIR [Concomitant]
     Active Substance: VALGANCICLOVIR
     Indication: Product used for unknown indication
     Dosage: UNK
     Route: 065

REACTIONS (9)
  - Cushing^s syndrome [Unknown]
  - Orthostatic hypotension [Unknown]
  - Tertiary adrenal insufficiency [Recovered/Resolved]
  - Type 2 diabetes mellitus [Unknown]
  - Cytomegalovirus infection reactivation [Unknown]
  - BK virus infection [Unknown]
  - Cystitis viral [Unknown]
  - Drug interaction [Unknown]
  - Product use in unapproved indication [Unknown]
